FAERS Safety Report 9561027 (Version 1)
Quarter: 2013Q2

REPORT INFORMATION
  Report Type: Spontaneous
  Country: CN (occurrence: None)
  Receive Date: 20130403
  Receipt Date: 20130403
  Transmission Date: 20140414
  Serious: Yes (Death, Other)
  Sender: FDA-Public Use
  Company Number: US-2012-11571

PATIENT
  Age: 10 Year
  Sex: Female

DRUGS (9)
  1. BUSULFEX [Suspect]
     Indication: BONE MARROW CONDITIONING REGIMEN
     Route: 042
  2. CYCLOPHOSPHAMIDE (CYCLOPHOSPHAMIDE) [Suspect]
     Indication: BONE MARROW CONDITIONING REGIMEN
  3. MELPHALAN [Suspect]
     Indication: BONE MARROW CONDITIONING REGIMEN
  4. ANTITHYMOCYTE IMMUNOGLOBULIN [Suspect]
     Indication: BONE MARROW CONDITIONING REGIMEN
  5. FLUCONAZOLE (FLUCONAZOLE) [Concomitant]
  6. ACYCLOVIR (ACICLOVIR) (ACICLOVIR) [Concomitant]
  7. COTRIMOXAZOLE (SULFAMETHOXAZOLE, TRIMETHOPRIM) [Concomitant]
  8. CYCLOSPORINE (CICLOSPORIN) [Concomitant]
  9. METHOTREXATE (METHOTREXATE) [Concomitant]

REACTIONS (5)
  - Pneumonia [None]
  - Acute graft versus host disease in skin [None]
  - Acute graft versus host disease in intestine [None]
  - Chronic graft versus host disease [None]
  - Infection [None]
